FAERS Safety Report 11165295 (Version 1)
Quarter: 2015Q2

REPORT INFORMATION
  Report Type: Report from Study
  Country: US (occurrence: US)
  Receive Date: 20150604
  Receipt Date: 20150604
  Transmission Date: 20150821
  Serious: Yes (Other)
  Sender: FDA-Public Use
  Company Number: US-BAXTER-2015BAX029715

PATIENT
  Sex: Male

DRUGS (1)
  1. GAMMAGARD LIQUID [Suspect]
     Active Substance: HUMAN IMMUNOGLOBULIN G
     Indication: IMMUNODEFICIENCY COMMON VARIABLE
     Route: 042

REACTIONS (6)
  - Haemochromatosis [Unknown]
  - Nasopharyngitis [Unknown]
  - Ear neoplasm [Unknown]
  - Nausea [Unknown]
  - Headache [Unknown]
  - Deafness [Unknown]
